FAERS Safety Report 4392050-9 (Version None)
Quarter: 2004Q3

REPORT INFORMATION
  Report Type: 
  Country: None (occurrence: None)
  Receive Date: 20040708
  Receipt Date: 20040623
  Transmission Date: 20050211
  Serious: Yes (Hospitalization, Other)
  Sender: FDA-Public Use
  Company Number: PHRM2004FR02235

PATIENT
  Age: 58 Year
  Sex: Female

DRUGS (6)
  1. COTAREG [Suspect]
     Indication: HYPERTENSION
     Route: 048
     Dates: start: 20010101, end: 20040422
  2. SECTRAL [Concomitant]
     Dosage: 600 MG, DAILY
     Route: 048
  3. LYSANXIA [Concomitant]
     Dosage: 10 MG, DAILY
     Route: 048
  4. TORENTAL [Concomitant]
     Dosage: 400 MG, DAILY
     Route: 048
  5. ASPIRIN [Concomitant]
     Dosage: 75 MG, DAILY
     Route: 048
  6. OMEPRAZOLE [Concomitant]
     Dosage: 10 MG, DAILY
     Route: 048

REACTIONS (14)
  - ANAEMIA MACROCYTIC [None]
  - BLOOD CREATININE INCREASED [None]
  - BLOOD FOLATE DECREASED [None]
  - BLOOD URINE PRESENT [None]
  - CREATININE RENAL CLEARANCE DECREASED [None]
  - DEHYDRATION [None]
  - GENERAL PHYSICAL HEALTH DETERIORATION [None]
  - HAEMOGLOBIN DECREASED [None]
  - OLIGURIA [None]
  - PROTEIN URINE PRESENT [None]
  - RED BLOOD CELL COUNT DECREASED [None]
  - RENAL DISORDER [None]
  - RENAL FAILURE ACUTE [None]
  - WEIGHT DECREASED [None]
